FAERS Safety Report 23830041 (Version 2)
Quarter: 2024Q2

REPORT INFORMATION
  Report Type: Spontaneous
  Country: IN (occurrence: None)
  Receive Date: 20240508
  Receipt Date: 20240510
  Transmission Date: 20240716
  Serious: Yes (Hospitalization)
  Sender: FDA-Public Use
  Company Number: IN-ROCHE-3558523

PATIENT
  Sex: Male

DRUGS (1)
  1. TECENTRIQ [Suspect]
     Active Substance: ATEZOLIZUMAB
     Indication: Hepatocellular carcinoma
     Route: 065

REACTIONS (7)
  - Myasthenia gravis [Unknown]
  - Encephalopathy [Unknown]
  - Hepatitis [Unknown]
  - Dysphagia [Unknown]
  - Dysarthria [Unknown]
  - Fatigue [Unknown]
  - Hepatic cirrhosis [Unknown]
